FAERS Safety Report 20904099 (Version 1)
Quarter: 2022Q2

REPORT INFORMATION
  Report Type: Report from Study
  Country: US (occurrence: US)
  Receive Date: 20220602
  Receipt Date: 20220602
  Transmission Date: 20220721
  Serious: Yes (Other)
  Sender: FDA-Public Use
  Company Number: US-ABBVIE-22K-163-4415723-00

PATIENT
  Sex: Female

DRUGS (1)
  1. RINVOQ [Suspect]
     Active Substance: UPADACITINIB
     Indication: Psoriatic arthropathy
     Route: 048

REACTIONS (7)
  - Salivary gland mass [Unknown]
  - Illness [Unknown]
  - Dyspnoea [Unknown]
  - Asthenia [Unknown]
  - Dysphonia [Unknown]
  - Cough [Unknown]
  - Pyrexia [Unknown]
